FAERS Safety Report 8795805 (Version 1)
Quarter: 2012Q4

REPORT INFORMATION
  Report Type: 
  Country: US (occurrence: US)
  Receive Date: 20120919
  Receipt Date: 20120919
  Transmission Date: 20130627
  Serious: Yes (Hospitalization)
  Sender: FDA-Public Use
  Company Number: US-B.I. PHARMACEUTICALS,INC./RIDGEFIELD-2012-BP-22851BP

PATIENT
  Sex: Female
  Weight: 77 kg

DRUGS (7)
  1. SPIRIVA [Suspect]
     Indication: CHRONIC OBSTRUCTIVE PULMONARY DISEASE
     Dosage: 18 mcg
     Route: 055
     Dates: start: 2007
  2. ASPIRIN [Concomitant]
     Dosage: 650 mg
     Route: 048
  3. TOPROL XL [Concomitant]
     Indication: HYPERTENSION
     Dosage: 50 mg
     Route: 048
  4. HYDROCLOROTHIAZIDE [Concomitant]
     Dosage: 25 mg
     Route: 048
  5. OMEPRAZOLE [Concomitant]
     Indication: GASTROOESOPHAGEAL REFLUX DISEASE
     Dosage: 40 mg
     Route: 048
  6. LIPITOR [Concomitant]
     Indication: BLOOD CHOLESTEROL INCREASED
     Dosage: 80 mg
     Route: 048
  7. PLAVIX [Concomitant]
     Dosage: 75 mg
     Route: 048

REACTIONS (5)
  - Myocardial infarction [Recovered/Resolved]
  - Hyperhidrosis [Recovered/Resolved]
  - Headache [Recovered/Resolved]
  - Nausea [Recovered/Resolved]
  - Dyspepsia [Recovered/Resolved]
